FAERS Safety Report 6444201-X (Version None)
Quarter: 2009Q4

REPORT INFORMATION
  Report Type: 
  Country: None (occurrence: None)
  Receive Date: 20091118
  Receipt Date: 20091109
  Transmission Date: 20100525
  Serious: Yes (Other)
  Sender: FDA-Public Use
  Company Number: FR-ASTRAZENECA-2009SE26046

PATIENT
  Age: 73 Year
  Sex: Male

DRUGS (1)
  1. LIDOCAINE W/ EPINEPHRINE [Suspect]
     Indication: LOCAL ANAESTHESIA
     Route: 053

REACTIONS (1)
  - HEPATIC HYDROTHORAX [None]
